FAERS Safety Report 13232042 (Version 1)
Quarter: 2017Q1

REPORT INFORMATION
  Report Type: Spontaneous
  Country: CH (occurrence: CH)
  Receive Date: 20170214
  Receipt Date: 20170214
  Transmission Date: 20170428
  Serious: Yes (Hospitalization)
  Sender: FDA-Public Use
  Company Number: CH-ASTRAZENECA-2017SE13762

PATIENT
  Age: 34657 Day
  Sex: Female

DRUGS (20)
  1. DIGOXIN. [Suspect]
     Active Substance: DIGOXIN
     Route: 065
  2. MOVICOL [Concomitant]
     Active Substance: POLYETHYLENE GLYCOL 3350\POTASSIUM CHLORIDE\SODIUM BICARBONATE\SODIUM CHLORIDE
  3. BECOZYME [Concomitant]
     Active Substance: VITAMINS
  4. MARCOUMAR [Concomitant]
     Active Substance: PHENPROCOUMON
  5. HEMERAN [Concomitant]
  6. TOREM [Concomitant]
     Active Substance: TORSEMIDE
  7. VITAMIN D3 STREULI [Concomitant]
  8. BELOC ZOK [Suspect]
     Active Substance: METOPROLOL SUCCINATE
     Route: 048
  9. REMERON [Suspect]
     Active Substance: MIRTAZAPINE
     Route: 048
     Dates: end: 20161208
  10. TOREM [Concomitant]
     Active Substance: TORSEMIDE
  11. TIMOPTIC [Concomitant]
     Active Substance: TIMOLOL MALEATE
  12. ZOLPIDEM [Suspect]
     Active Substance: ZOLPIDEM\ZOLPIDEM TARTRATE
     Dosage: 10 MG, ONE TABLET IN THE EVENING, AND ADDITIONAL ZOLPIDEM 10 MG WHEN NEEDED (NON-AZ DRUG)
     Route: 048
  13. ZOLPIDEM [Suspect]
     Active Substance: ZOLPIDEM\ZOLPIDEM TARTRATE
     Dosage: HALF-DOSE ADMINISTRATION OF 5 MG/DAY FOR TWO DAYS
     Route: 048
     Dates: end: 20161209
  14. VALVERDE VERSTOPFUNG [Concomitant]
     Active Substance: HERBALS
  15. PROCTO-GLYVENOL [Concomitant]
     Active Substance: LIDOCAINE HYDROCHLORIDE\TRIBENOSIDE
  16. ATACAND [Suspect]
     Active Substance: CANDESARTAN CILEXETIL
     Route: 048
  17. RISPERDAL [Suspect]
     Active Substance: RISPERIDONE
     Route: 048
  18. ACIDUM FOLICUM STREULI [Concomitant]
     Active Substance: FOLIC ACID
  19. CIRCADIN [Suspect]
     Active Substance: MELATONIN
     Route: 048
  20. BENERVA [Concomitant]
     Active Substance: THIAMINE

REACTIONS (5)
  - Confusional state [Recovering/Resolving]
  - Fatigue [Recovering/Resolving]
  - Restlessness [Unknown]
  - Somnolence [Unknown]
  - Disturbance in attention [Recovering/Resolving]

NARRATIVE: CASE EVENT DATE: 20161208
